FAERS Safety Report 9997856 (Version 1)
Quarter: 2014Q1

REPORT INFORMATION
  Report Type: Spontaneous
  Country: US (occurrence: US)
  Receive Date: 20140311
  Receipt Date: 20140311
  Transmission Date: 20141002
  Serious: No
  Sender: FDA-Public Use
  Company Number: US-PFIZER INC-2014067025

PATIENT
  Age: 33 Year
  Sex: Female
  Weight: 131 kg

DRUGS (2)
  1. LYRICA [Suspect]
     Indication: NEURALGIA
     Dosage: 150 MG, 2X/DAY
     Dates: start: 2013
  2. LYRICA [Suspect]
     Indication: NERVE INJURY

REACTIONS (11)
  - Influenza [Unknown]
  - Sneezing [Unknown]
  - Cough [Unknown]
  - Respiratory tract congestion [Unknown]
  - Rhinorrhoea [Unknown]
  - Headache [Unknown]
  - Pain [Unknown]
  - Pyrexia [Unknown]
  - Lymphadenopathy [Unknown]
  - Malaise [Unknown]
  - Feeling of body temperature change [Unknown]
